FAERS Safety Report 9687603 (Version 1)
Quarter: 2013Q4

REPORT INFORMATION
  Report Type: Spontaneous
  Country: US (occurrence: None)
  Receive Date: 20131113
  Receipt Date: 20131113
  Transmission Date: 20140711
  Serious: No
  Sender: FDA-Public Use
  Company Number: None

PATIENT
  Age: 60 None
  Sex: Male
  Weight: 89.1 kg

DRUGS (1)
  1. SILDENAFIL [Suspect]
     Indication: ERECTILE DYSFUNCTION
     Dosage: 50 MG PRN PO
     Route: 048
     Dates: start: 20120315, end: 20120514

REACTIONS (2)
  - Nasal congestion [None]
  - Sinus headache [None]
